FAERS Safety Report 13592543 (Version 1)
Quarter: 2017Q2

REPORT INFORMATION
  Report Type: Spontaneous
  Country: CH (occurrence: CH)
  Receive Date: 20170530
  Receipt Date: 20170530
  Transmission Date: 20170830
  Serious: Yes (Other)
  Sender: FDA-Public Use
  Company Number: CH-TEVA-771766ISR

PATIENT
  Age: 18 Year
  Sex: Male

DRUGS (2)
  1. CIPRALEX [Suspect]
     Active Substance: ESCITALOPRAM OXALATE
     Dosage: 160 MILLIGRAM DAILY;
     Route: 065
     Dates: start: 20170502
  2. AZITHROMYCIN MEPHA [Suspect]
     Active Substance: AZITHROMYCIN ANHYDROUS
     Dosage: 1000 MILLIGRAM DAILY;
     Route: 041

REACTIONS (4)
  - Gastrointestinal disorder [Unknown]
  - Cardiac disorder [Unknown]
  - Dyspnoea [Unknown]
  - Neck pain [Unknown]

NARRATIVE: CASE EVENT DATE: 20170502
